FAERS Safety Report 18010518 (Version 1)
Quarter: 2020Q3

REPORT INFORMATION
  Report Type: Spontaneous
  Country: CN (occurrence: CN)
  Receive Date: 20200711
  Receipt Date: 20200711
  Transmission Date: 20201103
  Serious: Yes (Other)
  Sender: FDA-Public Use
  Company Number: NVSC2020CN195106

PATIENT
  Age: 17 Year
  Sex: Male

DRUGS (6)
  1. CYCLOPHOSPHAMIDE. [Suspect]
     Active Substance: CYCLOPHOSPHAMIDE
     Indication: IMMUNOSUPPRESSANT DRUG THERAPY
  2. CYCLOSPORINE. [Suspect]
     Active Substance: CYCLOSPORINE
     Indication: ALLOGENIC STEM CELL TRANSPLANTATION
  3. CYCLOPHOSPHAMIDE. [Suspect]
     Active Substance: CYCLOPHOSPHAMIDE
     Indication: ALLOGENIC STEM CELL TRANSPLANTATION
  4. CYCLOSPORINE. [Suspect]
     Active Substance: CYCLOSPORINE
     Indication: IMMUNOSUPPRESSANT DRUG THERAPY
  5. CYCLOSPORINE. [Suspect]
     Active Substance: CYCLOSPORINE
     Indication: PROPHYLAXIS AGAINST GRAFT VERSUS HOST DISEASE
     Dosage: UNK
     Route: 065
  6. CYCLOPHOSPHAMIDE. [Suspect]
     Active Substance: CYCLOPHOSPHAMIDE
     Indication: PROPHYLAXIS AGAINST GRAFT VERSUS HOST DISEASE
     Dosage: UNK
     Route: 065

REACTIONS (15)
  - Acute graft versus host disease [Recovering/Resolving]
  - Diarrhoea [Recovering/Resolving]
  - Thrombotic microangiopathy [Recovering/Resolving]
  - Hypoaesthesia [Recovering/Resolving]
  - Chromaturia [Recovering/Resolving]
  - Haematemesis [Recovering/Resolving]
  - Faeces discoloured [Recovering/Resolving]
  - Disorientation [Recovering/Resolving]
  - Haemorrhage [Recovering/Resolving]
  - Oropharyngeal pain [Recovering/Resolving]
  - Generalised tonic-clonic seizure [Recovering/Resolving]
  - Mouth ulceration [Recovering/Resolving]
  - Purpura [Recovering/Resolving]
  - Slow speech [Recovering/Resolving]
  - Poor quality sleep [Recovering/Resolving]
